FAERS Safety Report 9978949 (Version 1)
Quarter: 2014Q1

REPORT INFORMATION
  Report Type: Report from Study
  Country: US (occurrence: US)
  Receive Date: 20140306
  Receipt Date: 20140306
  Transmission Date: 20141002
  Serious: No
  Sender: FDA-Public Use
  Company Number: US-ABBVIE-13P-163-1169583-00

PATIENT
  Age: 67 Year
  Sex: Female
  Weight: 131.66 kg

DRUGS (16)
  1. HUMIRA [Suspect]
     Indication: PSORIATIC ARTHROPATHY
     Dates: start: 20120312
  2. METHOTREXATE [Concomitant]
     Indication: PSORIATIC ARTHROPATHY
  3. LEFLUNOMIDE [Concomitant]
     Indication: PSORIATIC ARTHROPATHY
  4. SYNTHROID [Concomitant]
     Indication: HYPOTHYROIDISM
  5. OMEPRAZOLE [Concomitant]
     Indication: GASTROOESOPHAGEAL REFLUX DISEASE
  6. LISINOPRIL [Concomitant]
     Indication: HYPERTENSION
  7. FUROSEMIDE [Concomitant]
     Indication: FLUID RETENTION
  8. ACTOS [Concomitant]
     Indication: DIABETES MELLITUS
  9. CARBAMAZEPINE [Concomitant]
     Indication: BIPOLAR DISORDER
  10. GLIPIZIDE [Concomitant]
     Indication: DIABETES MELLITUS
  11. CARVEDILOL [Concomitant]
     Indication: HYPERTENSION
  12. METFORMIN [Concomitant]
     Indication: DIABETES MELLITUS
  13. LEUKOVORIN [Concomitant]
     Indication: NAUSEA
  14. LANTUS [Concomitant]
     Indication: DIABETES MELLITUS
  15. ASPIRIN [Concomitant]
     Indication: CARDIAC DISORDER
  16. ASPIRIN [Concomitant]
     Indication: PROPHYLAXIS

REACTIONS (3)
  - Liver disorder [Not Recovered/Not Resolved]
  - Hepatic pain [Not Recovered/Not Resolved]
  - Pain in extremity [Not Recovered/Not Resolved]
